FAERS Safety Report 8389824-6 (Version None)
Quarter: 2012Q2

REPORT INFORMATION
  Report Type: 
  Country: None (occurrence: None)
  Receive Date: 20120524
  Receipt Date: 20120524
  Transmission Date: 20120825
  Serious: Yes (Hospitalization)
  Sender: FDA-Public Use
  Company Number: None

PATIENT
  Sex: Female
  Weight: 44.8 kg

DRUGS (1)
  1. ERBITUX [Suspect]
     Dosage: 355 MG

REACTIONS (5)
  - RADIATION SKIN INJURY [None]
  - DRY SKIN [None]
  - DERMATITIS ACNEIFORM [None]
  - ORAL PAIN [None]
  - DYSPHAGIA [None]
